FAERS Safety Report 11197463 (Version 1)
Quarter: 2015Q2

REPORT INFORMATION
  Report Type: Report from Study
  Country: US (occurrence: US)
  Receive Date: 20150617
  Receipt Date: 20150617
  Transmission Date: 20150821
  Serious: Yes (Other)
  Sender: FDA-Public Use
  Company Number: US-CELGENE-USA-2015061583

PATIENT
  Age: 56 Year
  Sex: Female
  Weight: 57.8 kg

DRUGS (8)
  1. WELLBUTRIN XL [Concomitant]
     Active Substance: BUPROPION HYDROCHLORIDE
     Indication: DEPRESSION
     Route: 048
     Dates: start: 20141001
  2. CHOLECALCIFEROL [Concomitant]
     Active Substance: CHOLECALCIFEROL
     Indication: VITAMIN D DEFICIENCY
     Dosage: 5000 IU
     Route: 048
     Dates: start: 20150301
  3. REGLAN [Concomitant]
     Active Substance: METOCLOPRAMIDE HYDROCHLORIDE
     Indication: GASTROOESOPHAGEAL REFLUX DISEASE
     Route: 048
     Dates: start: 20141001
  4. MPDL3280A [Suspect]
     Active Substance: INVESTIGATIONAL PRODUCT
     Indication: NEOPLASM
     Route: 041
     Dates: start: 20150409
  5. ABRAXANE [Suspect]
     Active Substance: PACLITAXEL
     Indication: NEOPLASM
     Route: 041
     Dates: start: 20150326
  6. COMPAZINE [Concomitant]
     Active Substance: PROCHLORPERAZINE MALEATE
     Indication: NAUSEA
     Route: 048
     Dates: start: 20150326
  7. ZOFRAN [Concomitant]
     Active Substance: ONDANSETRON HYDROCHLORIDE
     Indication: NAUSEA
     Route: 065
  8. LORAZEPAM. [Concomitant]
     Active Substance: LORAZEPAM
     Indication: ANXIETY
     Route: 048

REACTIONS (3)
  - Alanine aminotransferase increased [Unknown]
  - Aspartate aminotransferase increased [Unknown]
  - Aspartate aminotransferase increased [Recovered/Resolved]

NARRATIVE: CASE EVENT DATE: 20150507
